FAERS Safety Report 21987397 (Version 1)
Quarter: 2023Q1

REPORT INFORMATION
  Report Type: Spontaneous
  Country: GB (occurrence: GB)
  Receive Date: 20230214
  Receipt Date: 20230214
  Transmission Date: 20230417
  Serious: No
  Sender: FDA-Public Use
  Company Number: None

PATIENT
  Age: 74 Year
  Sex: Female
  Weight: 85 kg

DRUGS (17)
  1. CEPHALEXIN [Suspect]
     Active Substance: CEPHALEXIN
     Indication: Ill-defined disorder
     Dosage: UNK
     Route: 065
     Dates: start: 20220825
  2. ATORVASTATIN [Concomitant]
     Active Substance: ATORVASTATIN
     Indication: Ill-defined disorder
     Dosage: UNK, HS (TAKE ONE EACH NIGHT), (TO HELP REDUCE CHOLESTEROL)
     Route: 065
     Dates: start: 20211007
  3. BETAHISTINE [Concomitant]
     Active Substance: BETAHISTINE
     Indication: Ill-defined disorder
     Dosage: UNK, TID (TAKE ONE THREE TIMES A DAY TO TREAT DIZZINESS)
     Route: 065
     Dates: start: 20211007
  4. CEPHALEXIN [Concomitant]
     Active Substance: CEPHALEXIN
     Indication: Ill-defined disorder
     Dosage: UNK TID (TAKE ONE 3 TIMES/DAY)
     Route: 065
     Dates: start: 20220819
  5. BECLOMETHASONE DIPROPIONATE [Concomitant]
     Active Substance: BECLOMETHASONE DIPROPIONATE
     Indication: Ill-defined disorder
     Dosage: UNK, BID (INHALE TWO PUFFS TWICE DAILY REGULARLY (PREVENTER)
     Route: 065
     Dates: start: 20211011, end: 20220728
  6. DOXYCYCLINE [Concomitant]
     Active Substance: DOXYCYCLINE
     Indication: Ill-defined disorder
     Dosage: UNK (TAKE TWO NOW THEN ONE DAILY FOR 4 DAYS TO TREAT INFECTION)
     Route: 065
     Dates: start: 20220728, end: 20220802
  7. ENALAPRIL [Concomitant]
     Active Substance: ENALAPRIL
     Indication: Ill-defined disorder
     Dosage: UNK, OD
     Route: 065
     Dates: start: 20211007
  8. FLUTICASONE FUROATE [Concomitant]
     Active Substance: FLUTICASONE FUROATE
     Indication: Ill-defined disorder
     Dosage: UNK, BID (TWO SPRAYS ONCE A DAY INTO EACH NOSTRIL)
     Route: 065
     Dates: start: 20211007, end: 20220707
  9. BECLOMETHASONE\FORMOTEROL [Concomitant]
     Active Substance: BECLOMETHASONE\FORMOTEROL
     Indication: Ill-defined disorder
     Dosage: UNK, BID (INHALE TWO PUFFS TWICE DAILY)
     Route: 065
     Dates: start: 20220728
  10. HYDROXOCOBALAMIN [Concomitant]
     Active Substance: HYDROXOCOBALAMIN
     Indication: Ill-defined disorder
     Dosage: UNK (INJECT ONE DOSE EVERY THREE MONTHS)
     Route: 065
     Dates: start: 20211007
  11. LEVOTHYROXINE [Concomitant]
     Active Substance: LEVOTHYROXINE
     Indication: Ill-defined disorder
     Dosage: UNK, QOD (TAKE ONE ALTERNATE DAYS (HYPOTHYROID REPLACEMENT)
     Route: 065
     Dates: start: 20211007
  12. LORAZEPAM [Concomitant]
     Active Substance: LORAZEPAM
     Indication: Ill-defined disorder
     Dosage: UNK (1 ON)
     Route: 065
     Dates: start: 20211007
  13. MOMETASONE [Concomitant]
     Active Substance: MOMETASONE
     Indication: Ill-defined disorder
     Dosage: UNK (USE ONE OR TWO DOSES DAILY INTO EACH NOSTRIL)
     Route: 065
     Dates: start: 20220707, end: 20220804
  14. OMEPRAZOLE [Concomitant]
     Active Substance: OMEPRAZOLE
     Indication: Ill-defined disorder
     Dosage: UNK, QD (1 DAILY)
     Route: 065
     Dates: start: 20211007
  15. PROPRANOLOL [Concomitant]
     Active Substance: PROPRANOLOL HYDROCHLORIDE
     Indication: Ill-defined disorder
     Dosage: UNK (1 TO 3)
     Route: 065
     Dates: start: 20211007
  16. ALBUTEROL [Concomitant]
     Active Substance: ALBUTEROL
     Indication: Ill-defined disorder
     Dosage: UNK, PRN (INHALE 2 DOSES AS NEEDED)
     Route: 065
     Dates: start: 20211007
  17. XYLOMETAZOLINE HYDROCHLORIDE [Concomitant]
     Active Substance: XYLOMETAZOLINE HYDROCHLORIDE
     Indication: Ill-defined disorder
     Dosage: UNK, TID (USE ONE DOSE IN EACH NOSTRIL UP TO THREE TIMES)
     Route: 065
     Dates: start: 20220620, end: 20220627

REACTIONS (1)
  - Rash [Recovering/Resolving]

NARRATIVE: CASE EVENT DATE: 20220825
